FAERS Safety Report 8488933-0 (Version None)
Quarter: 2012Q3

REPORT INFORMATION
  Report Type: 
  Country: None (occurrence: None)
  Receive Date: 20120705
  Receipt Date: 20120705
  Transmission Date: 20120928
  Serious: Yes (Hospitalization)
  Sender: FDA-Public Use
  Company Number: DE-ROCHE-1074521

PATIENT
  Age: 72 Year
  Sex: Male
  Weight: 79 kg

DRUGS (7)
  1. ASPIRIN [Concomitant]
     Dates: start: 20010101
  2. VEMURAFENIB [Suspect]
     Indication: MALIGNANT MELANOMA
     Dosage: LAST DOSE PRIOR TO SAE 03/MAR/2012
     Route: 048
     Dates: start: 20120111, end: 20120303
  3. DIOVAN HCT [Concomitant]
     Dosage: TDD : 160/25 MG
     Dates: start: 20010101
  4. VEMURAFENIB [Suspect]
     Route: 048
     Dates: start: 20120308
  5. ALLOPURINOL [Concomitant]
     Dates: start: 20081001
  6. BISOPROLOL FUMARATE [Concomitant]
     Dates: start: 20010101, end: 20120329
  7. METFORMIN HCL [Concomitant]
     Dates: start: 20100510, end: 20120307

REACTIONS (1)
  - HYPERGLYCAEMIA [None]
